FAERS Safety Report 25870370 (Version 2)
Quarter: 2025Q4

REPORT INFORMATION
  Report Type: Spontaneous
  Country: CO (occurrence: CO)
  Receive Date: 20251001
  Receipt Date: 20251006
  Transmission Date: 20260117
  Serious: Yes (Other)
  Sender: Harrow Health
  Company Number: OTH

PATIENT
  Age: 40 Year
  Sex: Male

DRUGS (5)
  1. MAXITROL [Suspect]
     Active Substance: DEXAMETHASONE\NEOMYCIN SULFATE\POLYMYXIN B SULFATE
     Indication: Endophthalmitis
     Dosage: UNK, Q6H
  2. VIGAMOX [Suspect]
     Active Substance: MOXIFLOXACIN HYDROCHLORIDE
     Indication: Endophthalmitis
     Dosage: UNK, Q2H (EVERY 2 HOURS)
  3. LINEZOLID [Concomitant]
     Active Substance: LINEZOLID
  4. VANCOMYCIN [Concomitant]
     Active Substance: VANCOMYCIN
  5. CEFTAZIDIME [Concomitant]
     Active Substance: CEFTAZIDIME

REACTIONS (1)
  - Drug ineffective [Unknown]
